FAERS Safety Report 22240947 (Version 1)
Quarter: 2023Q2

REPORT INFORMATION
  Report Type: Spontaneous
  Country: US (occurrence: None)
  Receive Date: 20230420
  Receipt Date: 20230420
  Transmission Date: 20230722
  Serious: No
  Sender: FDA-Public Use
  Company Number: None

PATIENT
  Age: 92 Year
  Sex: Male
  Weight: 78.2 kg

DRUGS (20)
  1. ABIRATERONE ACETATE [Suspect]
     Active Substance: ABIRATERONE ACETATE
     Indication: Prostate cancer
     Dosage: FREQUENCY : DAILY;?
     Route: 048
     Dates: start: 20220712
  2. CALCIUM [Concomitant]
  3. ELIGARD [Concomitant]
  4. FENTANYL [Concomitant]
  5. GABAPENTIN [Concomitant]
  6. GLUCOSAMINE [Concomitant]
  7. HYDROCHLOROTHIAZIDE [Concomitant]
  8. ISOSORIDE MONOITRATE ER [Concomitant]
  9. LIPITOR [Concomitant]
     Active Substance: ATORVASTATIN CALCIUM
  10. LUPRON DEPOT [Concomitant]
  11. MAGNESIUM OXIDE [Concomitant]
  12. MELATONIN [Concomitant]
  13. METOPROLOL [Concomitant]
     Active Substance: METOPROLOL
  14. MULTIVITAMIN [Concomitant]
  15. NITROGLYCERIN [Concomitant]
  16. NORVASC [Concomitant]
  17. OMEPRAZOLE [Concomitant]
  18. SENOKOT [Concomitant]
  19. TRAMADOL [Concomitant]
  20. VITAMIN B12 [Concomitant]
     Active Substance: CYANOCOBALAMIN

REACTIONS (5)
  - Malignant neoplasm progression [None]
  - Fatigue [None]
  - Somnolence [None]
  - Decreased appetite [None]
  - Metastases to bone [None]
